FAERS Safety Report 11293654 (Version 1)
Quarter: 2015Q3

REPORT INFORMATION
  Report Type: Spontaneous
  Country: US (occurrence: US)
  Receive Date: 20150722
  Receipt Date: 20150722
  Transmission Date: 20151125
  Serious: No
  Sender: FDA-Public Use
  Company Number: US-GLAXOSMITHKLINE-US2015100599

PATIENT
  Age: 59 Year
  Sex: Female

DRUGS (1)
  1. FLONASE [Suspect]
     Active Substance: FLUTICASONE PROPIONATE
     Indication: NASAL CONGESTION
     Dosage: UNK
     Dates: start: 20150621

REACTIONS (4)
  - Ear congestion [Recovered/Resolved]
  - Condition aggravated [Recovered/Resolved]
  - Drug administration error [Unknown]
  - Nasal congestion [Recovered/Resolved]
